FAERS Safety Report 9157076 (Version 2)
Quarter: 2013Q2

REPORT INFORMATION
  Report Type: Spontaneous
  Country: US (occurrence: US)
  Receive Date: 20130312
  Receipt Date: 20130417
  Transmission Date: 20140414
  Serious: No
  Sender: FDA-Public Use
  Company Number: US-PFIZER INC-2013083399

PATIENT
  Sex: Male
  Weight: 74.38 kg

DRUGS (3)
  1. AMLODIPINE BESILATE [Suspect]
     Dosage: UNK
  2. AVAPRO [Concomitant]
     Indication: BLOOD PRESSURE ABNORMAL
     Dosage: 300 MG, DAILY
  3. PLAVIX [Concomitant]
     Dosage: UNK

REACTIONS (2)
  - Drug intolerance [Unknown]
  - Malaise [Unknown]
